FAERS Safety Report 8140884 (Version 2)
Quarter: 2013Q1

REPORT INFORMATION
  Report Type: Spontaneous
  Country: VE (occurrence: VE)
  Receive Date: 20110916
  Receipt Date: 20130103
  Transmission Date: 20140127
  Serious: Yes (Hospitalization, Other)
  Sender: FDA-Public Use
  Company Number: PHHY2011VE80037

PATIENT
  Sex: Female

DRUGS (12)
  1. DIOVAN [Suspect]
     Indication: HYPERTENSION
     Dosage: UNK
     Route: 048
     Dates: start: 1992
  2. TRENTAL ^ALBERT-ROUSSEL^ [Concomitant]
     Dosage: UNK
  3. STUGERON [Concomitant]
     Dosage: UNK
  4. ALENDRONATE SODIUM [Concomitant]
     Dosage: UNK
  5. MOTRIN [Concomitant]
     Dosage: UNK
  6. ASPIRINE [Concomitant]
  7. RIVOTRIL [Concomitant]
     Indication: NERVOUSNESS
  8. GINKGO BILOBA [Concomitant]
  9. NATRILIX [Concomitant]
     Indication: DIURETIC THERAPY
     Dosage: 1.25 MG, QD
     Dates: start: 2008
  10. OMEPRAZOLE [Concomitant]
  11. DICLOFENAC SODIUM [Concomitant]
     Indication: PAIN
     Dosage: 50 MG, UNK
     Route: 048
  12. TIOCOLCHICOSIDO [Concomitant]
     Indication: PAIN
     Dosage: 4 MG, UNK

REACTIONS (6)
  - Cholelithiasis [Recovered/Resolved]
  - Convulsion [Recovered/Resolved]
  - Hernia [Not Recovered/Not Resolved]
  - Osteoporosis [Recovering/Resolving]
  - Pain in extremity [Not Recovered/Not Resolved]
  - Tinnitus [Recovered/Resolved]
